FAERS Safety Report 7596279-8 (Version None)
Quarter: 2011Q3

REPORT INFORMATION
  Report Type: 
  Country: None (occurrence: None)
  Receive Date: 20110707
  Receipt Date: 20110701
  Transmission Date: 20111222
  Serious: Yes (Hospitalization)
  Sender: FDA-Public Use
  Company Number: AT-AMGEN-AUTSP2011010289

PATIENT
  Age: 82 Year
  Sex: Female
  Weight: 96 kg

DRUGS (9)
  1. VECTIBIX [Suspect]
     Indication: COLORECTAL CANCER METASTATIC
     Dosage: 6 MG/KG, Q2WK
     Route: 042
     Dates: start: 20110103, end: 20110118
  2. PANTOPRAZOL                        /01263202/ [Concomitant]
  3. TAXOTERE [Concomitant]
     Dosage: UNK
  4. ZYRTEC [Concomitant]
     Dosage: UNK UNK, BID
     Route: 048
  5. SPIRONOLACTONE [Concomitant]
  6. DIBONDRIN [Concomitant]
     Dosage: UNK
     Route: 042
     Dates: start: 20110103, end: 20110118
  7. REVATIO [Concomitant]
  8. SINTROM [Concomitant]
  9. TRACLEER [Concomitant]

REACTIONS (17)
  - BLISTER [None]
  - CARDIAC FAILURE [None]
  - CONJUNCTIVITIS [None]
  - DYSPNOEA [None]
  - RASH [None]
  - SCAB [None]
  - MUCOSAL INFLAMMATION [None]
  - FACE OEDEMA [None]
  - EYE PAIN [None]
  - MALAISE [None]
  - LACRIMATION INCREASED [None]
  - EYE INFLAMMATION [None]
  - PRURITUS [None]
  - PAIN OF SKIN [None]
  - EYE IRRITATION [None]
  - SKIN OEDEMA [None]
  - SKIN EXFOLIATION [None]
